FAERS Safety Report 8212349-5 (Version None)
Quarter: 2012Q1

REPORT INFORMATION
  Report Type: 
  Country: None (occurrence: None)
  Receive Date: 20120315
  Receipt Date: 20120229
  Transmission Date: 20120608
  Serious: Yes (Hospitalization)
  Sender: FDA-Public Use
  Company Number: DE-CELGENEUS-062-50794-12010288

PATIENT
  Age: 79 Year
  Sex: Male
  Weight: 80 kg

DRUGS (24)
  1. VIDAZA [Suspect]
     Dosage: 140MG DAILY
     Route: 041
     Dates: start: 20111130, end: 20111204
  2. CYTARABINE [Suspect]
     Dosage: 200 MILLIGRAM/SQ. METER
     Route: 041
     Dates: start: 20110829, end: 20110904
  3. PANTOPRAZOLE [Concomitant]
     Dosage: 20 MILLIGRAM
     Route: 048
  4. TIOTROPIUM BROMIDE [Concomitant]
     Route: 055
  5. TORSEMIDE [Concomitant]
     Route: 065
  6. VORICONAZOLE [Concomitant]
     Dosage: 15 MILLILITER
     Route: 048
     Dates: start: 20111210, end: 20111229
  7. NEUPOGEN [Concomitant]
     Route: 065
     Dates: start: 20111228, end: 20120101
  8. CYTARABINE [Suspect]
     Dosage: 1900 MILLIGRAM
     Route: 041
     Dates: start: 20111207, end: 20111207
  9. CYTARABINE [Suspect]
     Dosage: 1900 MILLIGRAM
     Route: 041
     Dates: start: 20111209, end: 20111209
  10. DAUNORUBICIN HCL [Suspect]
     Dosage: 90 MILLIGRAM/SQ. METER
     Route: 065
     Dates: start: 20110829, end: 20110904
  11. LINEZOLID [Concomitant]
     Indication: FEBRILE NEUTROPENIA
     Dosage: 600 MILLIGRAM
     Route: 041
     Dates: start: 20111227, end: 20111230
  12. LENOGRASTIM [Concomitant]
     Indication: NEUTROPENIA
     Dosage: MIQ IE
     Route: 058
     Dates: start: 20111228, end: 20120102
  13. PLATELETS [Concomitant]
     Route: 065
  14. VIDAZA [Suspect]
     Dosage: 140MG DAILY
     Route: 041
     Dates: start: 20111010, end: 20111014
  15. CYTARABINE [Suspect]
     Dosage: GRAM/SQM
     Route: 041
     Dates: start: 20111015, end: 20111019
  16. CEFTAZIDIM [Concomitant]
     Indication: FEBRILE NEUTROPENIA
     Dosage: 2 GRAM
     Route: 041
     Dates: start: 20111227, end: 20111230
  17. FORADIL [Concomitant]
     Route: 055
  18. RAMIPRIL [Concomitant]
     Dosage: 2.5 MILLIGRAM
     Route: 048
     Dates: start: 20070101
  19. AZULFIDINE [Concomitant]
     Route: 041
     Dates: start: 20111130, end: 20111203
  20. ERYTHROCYTES TRANSFUSION [Concomitant]
     Route: 065
  21. CYTARABINE [Suspect]
     Dosage: 1900 MILLIGRAM
     Route: 041
     Dates: start: 20111205, end: 20111205
  22. VERGENTAN [Concomitant]
     Route: 041
     Dates: start: 20111130, end: 20111209
  23. STEROFUNDIN [Concomitant]
     Route: 065
     Dates: start: 20111130, end: 20111210
  24. VIDAZA [Suspect]
     Indication: ACUTE MYELOID LEUKAEMIA
     Dosage: 75 MILLIGRAM/SQ. METER
     Route: 041
     Dates: start: 20110824, end: 20110828

REACTIONS (2)
  - CARDIAC FAILURE CONGESTIVE [None]
  - ACUTE MYOCARDIAL INFARCTION [None]
